FAERS Safety Report 22088368 (Version 7)
Quarter: 2024Q2

REPORT INFORMATION
  Report Type: Report from Study
  Country: BR (occurrence: BR)
  Receive Date: 20230313
  Receipt Date: 20240425
  Transmission Date: 20240715
  Serious: Yes (Other)
  Sender: FDA-Public Use
  Company Number: BR-002147023-NVSC2023BR055476

PATIENT
  Sex: Female
  Weight: 107 kg

DRUGS (8)
  1. KISQALI [Suspect]
     Active Substance: RIBOCICLIB
     Indication: Breast cancer female
     Dosage: 3 DOSAGE FORM
     Route: 065
  2. KISQALI [Suspect]
     Active Substance: RIBOCICLIB
     Dosage: UNK
     Route: 065
  3. KISQALI [Suspect]
     Active Substance: RIBOCICLIB
     Dosage: UNK
     Route: 065
     Dates: start: 202302
  4. KISQALI [Suspect]
     Active Substance: RIBOCICLIB
     Dosage: 3 DOSAGE FORM, QD (ONCE A DAY PER 21 DAYS AND 7DAYS PAUSE AFTER)
     Route: 048
     Dates: start: 20230209
  5. KISQALI [Suspect]
     Active Substance: RIBOCICLIB
     Dosage: 3 DOSAGE FORM, UNKNOWN
     Route: 065
  6. LETROZOLE [Suspect]
     Active Substance: LETROZOLE
     Indication: Product used for unknown indication
     Dosage: UNK
     Route: 065
     Dates: start: 2016
  7. FULVESTRANT [Suspect]
     Active Substance: FULVESTRANT
     Indication: Breast cancer
     Dosage: 500 MG (EVERY 28 DAYS)
     Route: 030
     Dates: start: 20230209
  8. PAMIDRONATE [Concomitant]
     Active Substance: PAMIDRONATE DISODIUM
     Indication: Osteonecrosis of jaw
     Dosage: 90 MG, QMO (FORMULATION: AMPOULE)
     Route: 042
     Dates: start: 20230209

REACTIONS (23)
  - Glaucoma [Unknown]
  - Neutropenia [Recovered/Resolved]
  - Decreased immune responsiveness [Recovered/Resolved]
  - Aphthous ulcer [Not Recovered/Not Resolved]
  - Eating disorder [Not Recovered/Not Resolved]
  - Genital erythema [Not Recovered/Not Resolved]
  - Urinary hesitation [Not Recovered/Not Resolved]
  - Skin disorder [Unknown]
  - Pigmentation disorder [Recovering/Resolving]
  - Lymphoedema [Not Recovered/Not Resolved]
  - Memory impairment [Unknown]
  - Decreased immune responsiveness [Unknown]
  - Disturbance in attention [Unknown]
  - Malaise [Unknown]
  - Insomnia [Recovered/Resolved]
  - Insomnia [Unknown]
  - Asthenia [Unknown]
  - Pruritus [Recovering/Resolving]
  - Platelet count decreased [Unknown]
  - Scar [Recovering/Resolving]
  - Pain [Unknown]
  - Infection [Unknown]
  - Swelling [Unknown]

NARRATIVE: CASE EVENT DATE: 20230101
